FAERS Safety Report 24039682 (Version 1)
Quarter: 2024Q3

REPORT INFORMATION
  Report Type: Spontaneous
  Country: JP (occurrence: JP)
  Receive Date: 20240702
  Receipt Date: 20240702
  Transmission Date: 20241017
  Serious: Yes (Other)
  Sender: RANBAXY
  Company Number: JP-SUN PHARMACEUTICAL INDUSTRIES LTD-2024RR-454202

PATIENT
  Age: 86 Year
  Sex: Female
  Weight: 44.6 kg

DRUGS (13)
  1. PIPERACILLIN SODIUM\TAZOBACTAM SODIUM [Suspect]
     Active Substance: PIPERACILLIN SODIUM\TAZOBACTAM SODIUM
     Indication: Sepsis
     Dosage: FOUR TIMES A DAY
     Route: 065
  2. AMLODIPINE [Suspect]
     Active Substance: AMLODIPINE BESYLATE
     Indication: Hypertension
     Dosage: 2.5 MILLIGRAM, DAILY
     Route: 065
  3. CARVEDILOL [Suspect]
     Active Substance: CARVEDILOL
     Indication: Hypertension
     Dosage: 10 MILLIGRAM, DAILY
     Route: 065
  4. OLMESARTAN [Suspect]
     Active Substance: OLMESARTAN
     Indication: Hypertension
     Dosage: 10 MILLIGRAM, DAILY
     Route: 065
  5. DAPTOMYCIN [Concomitant]
     Active Substance: DAPTOMYCIN
     Indication: Sepsis
     Dosage: 260 MILLIGRAM, EVERY 48H
  6. MEROPENEM [Concomitant]
     Active Substance: MEROPENEM
     Indication: Sepsis
     Dosage: 0.5 GRAM, QID
     Route: 065
  7. CIFENLINE [Concomitant]
     Active Substance: CIFENLINE
     Indication: Tendon disorder
     Dosage: 100 MILLIGRAM, DAILY
     Route: 048
  8. CELECOXIB [Concomitant]
     Active Substance: CELECOXIB
     Indication: Sepsis
     Dosage: 200 MILLIGRAM, DAILY
     Route: 048
  9. FAMOTIDINE [Concomitant]
     Active Substance: FAMOTIDINE
     Indication: Sepsis
     Dosage: 10 MILLIGRAM, DAILY
     Route: 048
  10. LEVODOPA [Concomitant]
     Active Substance: LEVODOPA
     Indication: Sepsis
     Dosage: 300 MILLIGRAM, DAILY
     Route: 048
  11. RAMELTEON [Concomitant]
     Active Substance: RAMELTEON
     Indication: Sepsis
     Dosage: 8 MILLIGRAM, DAILY
     Route: 048
  12. MAGNESIUM OXIDE [Concomitant]
     Active Substance: MAGNESIUM OXIDE
     Indication: Sepsis
     Dosage: 990 MILLIGRAM, DAILY
     Route: 048
  13. SENNOSIDES [Concomitant]
     Active Substance: SENNOSIDES
     Indication: Sepsis
     Dosage: 12 MILLIGRAM, DAILY
     Route: 048

REACTIONS (3)
  - Hypotension [Unknown]
  - Depressed level of consciousness [Unknown]
  - Drug resistance [Unknown]
